FAERS Safety Report 10330442 (Version 3)
Quarter: 2014Q3

REPORT INFORMATION
  Report Type: Spontaneous
  Country: US (occurrence: US)
  Receive Date: 20140722
  Receipt Date: 20140821
  Transmission Date: 20150326
  Serious: Yes (Disabling)
  Sender: FDA-Public Use
  Company Number: US-BEH-2014043865

PATIENT
  Age: 59 Year
  Sex: Male

DRUGS (1)
  1. ZEMAIRA [Suspect]
     Active Substance: .ALPHA.1-PROTEINASE INHIBITOR HUMAN
     Indication: ALPHA-1 ANTI-TRYPSIN DEFICIENCY
     Dates: start: 20140401, end: 20140501

REACTIONS (2)
  - Dyspnoea [Recovered/Resolved]
  - Dyspnoea exertional [Unknown]

NARRATIVE: CASE EVENT DATE: 20140725
